FAERS Safety Report 16927011 (Version 2)
Quarter: 2020Q1

REPORT INFORMATION
  Report Type: Spontaneous
  Country: US (occurrence: US)
  Receive Date: 20191016
  Receipt Date: 20200308
  Transmission Date: 20200409
  Serious: No
  Sender: FDA-Public Use
  Company Number: US-TEVA-2019-US-1122387

PATIENT
  Age: 73 Year
  Sex: Male

DRUGS (13)
  1. ALBUTEROL SULFATE. [Concomitant]
     Active Substance: ALBUTEROL SULFATE
     Dosage: ALBUTEROL SULFATE 108 (90 BASE) MCG/ACT INHALATION AEPB
  2. CARVEDILOL TABLETS [Suspect]
     Active Substance: CARVEDILOL
     Dosage: 25 MILLIGRAM DAILY;
     Dates: start: 201905, end: 20191220
  3. RANOLAZINE. [Concomitant]
     Active Substance: RANOLAZINE
     Dosage: 2 DOSAGE FORMS DAILY; EXTENDED RELEASE
     Route: 048
  4. ALLOPURINOL. [Concomitant]
     Active Substance: ALLOPURINOL
     Dosage: 1 DOSAGE FORMS DAILY;
     Route: 048
  5. ROPINIROLE. [Concomitant]
     Active Substance: ROPINIROLE
     Route: 048
  6. COLCHICINE. [Concomitant]
     Active Substance: COLCHICINE
     Dosage: 1 DOSAGE FORMS DAILY;
     Route: 048
  7. CARVEDILOL TABLETS [Suspect]
     Active Substance: CARVEDILOL
     Dosage: 50 MILLIGRAM DAILY;
     Dates: start: 201912
  8. LOSARTAN. [Concomitant]
     Active Substance: LOSARTAN
     Dosage: 1 DOSAGE FORMS DAILY;
     Route: 048
  9. ISOSORBIDE MONONITRATE ER [Concomitant]
     Active Substance: ISOSORBIDE MONONITRATE
     Dosage: 1 DOSAGE FORMS DAILY; 120 MG 24 HR TABLET
     Route: 048
  10. ASPIRIN. [Concomitant]
     Active Substance: ASPIRIN
     Dosage: 1 DOSAGE FORMS DAILY; CHEWABLE TABLET
     Route: 048
  11. NITROGLYCERIN. [Concomitant]
     Active Substance: NITROGLYCERIN
     Indication: CHEST PAIN
     Dosage: PLACE 1 TABLET UNDER THE TONGUE EVERY 5 MIN (UPTO 3 DOSES) AS NEEDED FOR CHEST PAIN
     Route: 060
  12. ATORVASTATIN [Concomitant]
     Active Substance: ATORVASTATIN
     Dosage: 1 DOSAGE FORMS DAILY; BED TIME
     Route: 048
  13. AMLODIPINE [Concomitant]
     Active Substance: AMLODIPINE BESYLATE
     Dosage: 1 DOSAGE FORMS DAILY;
     Route: 048

REACTIONS (2)
  - Chapped lips [Not Recovered/Not Resolved]
  - Dry mouth [Not Recovered/Not Resolved]
